FAERS Safety Report 7449300-1 (Version None)
Quarter: 2011Q2

REPORT INFORMATION
  Report Type: 
  Country: None (occurrence: None)
  Receive Date: 20110502
  Receipt Date: 20110421
  Transmission Date: 20111010
  Serious: No
  Sender: FDA-Public Use
  Company Number: US-BIOGENIDEC-2011BI013705

PATIENT
  Age: 33 Year
  Sex: Male

DRUGS (1)
  1. TYSABRI [Suspect]
     Indication: MULTIPLE SCLEROSIS
     Route: 042
     Dates: start: 20100908

REACTIONS (5)
  - ARTHRALGIA [None]
  - CYST [None]
  - LIGAMENT RUPTURE [None]
  - RASH MACULO-PAPULAR [None]
  - HEADACHE [None]
